FAERS Safety Report 24314143 (Version 1)
Quarter: 2024Q3

REPORT INFORMATION
  Report Type: Report from Study
  Country: US (occurrence: US)
  Receive Date: 20240912
  Receipt Date: 20240912
  Transmission Date: 20241016
  Serious: Yes (Hospitalization)
  Sender: HLS THERAPEUTICS
  Company Number: US-HLS-202401159

PATIENT
  Age: 44 Year
  Sex: Male

DRUGS (1)
  1. CLOZAPINE [Suspect]
     Active Substance: CLOZAPINE
     Indication: Product used for unknown indication
     Route: 048

REACTIONS (1)
  - Abnormal behaviour [Unknown]
